FAERS Safety Report 7990109-8 (Version None)
Quarter: 2011Q4

REPORT INFORMATION
  Report Type: 
  Country: None (occurrence: None)
  Receive Date: 20111219
  Receipt Date: 20110816
  Transmission Date: 20120403
  Serious: No
  Sender: FDA-Public Use
  Company Number: US-ASTRAZENECA-2011SE49057

PATIENT
  Age: 83 Year
  Sex: Male
  Weight: 98 kg

DRUGS (6)
  1. CRESTOR [Suspect]
     Indication: ATHEROSCLEROSIS PROPHYLAXIS
     Route: 048
  2. METFORMIN GLUCOPLUS [Concomitant]
     Indication: DIABETES MELLITUS
     Route: 048
     Dates: start: 20050101
  3. BABY ASPIRIN/FULL ASPIRIN [Concomitant]
     Indication: CARDIAC DISORDER
     Route: 048
     Dates: start: 20010101
  4. BABY ASPIRIN/FULL ASPIRIN [Concomitant]
     Route: 048
     Dates: start: 20080101
  5. ENALAPRIL MALEATE [Concomitant]
     Indication: VASODILATION PROCEDURE
     Route: 048
     Dates: start: 20100101
  6. METOPROLOL TARTRATE [Concomitant]
     Indication: CARDIAC DISORDER
     Route: 048
     Dates: start: 20000101

REACTIONS (4)
  - TYPE 2 DIABETES MELLITUS [None]
  - OEDEMA PERIPHERAL [None]
  - JOINT SWELLING [None]
  - PAIN IN EXTREMITY [None]
